FAERS Safety Report 7780366-5 (Version None)
Quarter: 2011Q3

REPORT INFORMATION
  Report Type: 
  Country: None (occurrence: None)
  Receive Date: 20110927
  Receipt Date: 20110314
  Transmission Date: 20111222
  Serious: No
  Sender: FDA-Public Use
  Company Number: US-ASTRAZENECA-2011SE08926

PATIENT
  Age: 31 Year
  Sex: Male
  Weight: 88 kg

DRUGS (6)
  1. SEROQUEL XR [Suspect]
     Route: 048
     Dates: start: 20110101
  2. SOMA [Concomitant]
     Indication: BACK PAIN
  3. SEROQUEL XR [Suspect]
     Route: 048
     Dates: start: 20101201, end: 20110101
  4. SEROQUEL XR [Suspect]
     Indication: BIPOLAR DISORDER
     Route: 048
     Dates: start: 20101201, end: 20101201
  5. XANAX [Concomitant]
     Indication: ANXIETY
  6. SEROQUEL XR [Suspect]
     Route: 048

REACTIONS (5)
  - DRUG PRESCRIBING ERROR [None]
  - AGITATION [None]
  - INCORRECT DOSE ADMINISTERED [None]
  - INSOMNIA [None]
  - DRUG INEFFECTIVE [None]
